FAERS Safety Report 8108799-8 (Version None)
Quarter: 2012Q1

REPORT INFORMATION
  Report Type: 
  Country: None (occurrence: None)
  Receive Date: 20120202
  Receipt Date: 20120116
  Transmission Date: 20120608
  Serious: No
  Sender: FDA-Public Use
  Company Number: US-AMGEN-USASP2012002978

PATIENT
  Age: 50 Year
  Sex: Female

DRUGS (1)
  1. ENBREL [Suspect]
     Indication: PSORIATIC ARTHROPATHY
     Dosage: 50 MG, QWK
     Dates: start: 20080619, end: 20111209

REACTIONS (9)
  - CARPAL TUNNEL SYNDROME [None]
  - HYPOAESTHESIA [None]
  - CONTUSION [None]
  - LACERATION [None]
  - PAIN IN EXTREMITY [None]
  - HAEMORRHAGE [None]
  - NODULE [None]
  - ARTHRALGIA [None]
  - OEDEMA PERIPHERAL [None]
